FAERS Safety Report 4617096-4 (Version None)
Quarter: 2005Q1

REPORT INFORMATION
  Report Type: 
  Country: None (occurrence: None)
  Receive Date: 20050323
  Receipt Date: 20050114
  Transmission Date: 20050727
  Serious: Yes (Other)
  Sender: FDA-Public Use
  Company Number: DE-MERCK-0501USA03113

PATIENT
  Age: 9 Year
  Sex: Female

DRUGS (5)
  1. ELSPAR [Suspect]
     Indication: ACUTE LYMPHOCYTIC LEUKAEMIA
     Route: 041
  2. DAUNORUBICIN [Concomitant]
     Indication: ACUTE LYMPHOCYTIC LEUKAEMIA
     Route: 041
  3. METHOTREXATE [Concomitant]
     Route: 065
  4. PREDNISONE [Concomitant]
     Route: 048
  5. VINCRISTINE SULFATE [Concomitant]
     Indication: ACUTE LYMPHOCYTIC LEUKAEMIA
     Route: 041

REACTIONS (2)
  - BRAIN OEDEMA [None]
  - THROMBOSIS [None]
